FAERS Safety Report 8055026-6 (Version None)
Quarter: 2012Q1

REPORT INFORMATION
  Report Type: 
  Country: None (occurrence: None)
  Receive Date: 20120119
  Receipt Date: 20120112
  Transmission Date: 20120608
  Serious: Yes (Death, Disabling, Other)
  Sender: FDA-Public Use
  Company Number: FR-PFIZER INC-2010153176

PATIENT
  Age: 78 Year
  Sex: Male

DRUGS (2)
  1. ALPHAGAN [Concomitant]
     Indication: OPEN ANGLE GLAUCOMA
  2. TORISEL [Suspect]
     Indication: MANTLE CELL LYMPHOMA
     Dosage: FIRST THREE CURES AT 175MG AND THE FOLLOWING AT 75 MG
     Route: 042
     Dates: start: 20091222, end: 20100702

REACTIONS (7)
  - NASAL OBSTRUCTION [None]
  - DEATH [None]
  - BLINDNESS [None]
  - RASH [None]
  - DYSLIPIDAEMIA [None]
  - OPTIC NEUROPATHY [None]
  - INTERSTITIAL LUNG DISEASE [None]
